FAERS Safety Report 6843059-4 (Version None)
Quarter: 2010Q3

REPORT INFORMATION
  Report Type: 
  Country: None (occurrence: None)
  Receive Date: 20100712
  Receipt Date: 20100706
  Transmission Date: 20110219
  Serious: Yes (Hospitalization, Other)
  Sender: FDA-Public Use
  Company Number: AX108-10-0343

PATIENT
  Age: 57 Year
  Sex: Female
  Weight: 662 kg

DRUGS (7)
  1. ABRAXANE [Suspect]
     Indication: BREAST CANCER
     Dosage: (174 MG)
     Dates: start: 20100405
  2. AVASTIN [Suspect]
     Indication: BREAST CANCER
     Dosage: (1004 MG)
     Dates: start: 20100423
  3. CARBOPLATIN [Suspect]
     Indication: BREAST CANCER
     Dosage: (715 MG)
     Dates: start: 20100423
  4. B STRESS COMPLEX (BECOSYM FORTE) [Concomitant]
  5. COMPAZINE [Concomitant]
  6. ONDANSETRON [Concomitant]
  7. DEXAMETHASONE [Concomitant]

REACTIONS (14)
  - ACTIVATED PARTIAL THROMBOPLASTIN TIME SHORTENED [None]
  - ASTHENIA [None]
  - CONJUNCTIVAL PALLOR [None]
  - DIVERTICULUM INTESTINAL HAEMORRHAGIC [None]
  - DIZZINESS [None]
  - GASTROINTESTINAL HAEMORRHAGE [None]
  - HAEMATOCRIT DECREASED [None]
  - HAEMOGLOBIN DECREASED [None]
  - HAEMORRHOIDAL HAEMORRHAGE [None]
  - HEART RATE INCREASED [None]
  - POLYP [None]
  - RECTAL HAEMORRHAGE [None]
  - THROMBOCYTOPENIA [None]
  - WHITE BLOOD CELL COUNT DECREASED [None]
